FAERS Safety Report 25516685 (Version 1)
Quarter: 2025Q3

REPORT INFORMATION
  Report Type: Spontaneous
  Country: US (occurrence: US)
  Receive Date: 20250704
  Receipt Date: 20250704
  Transmission Date: 20251021
  Serious: Yes (Other)
  Sender: ACCORD
  Company Number: US-Accord-491552

PATIENT
  Age: 85 Year
  Sex: Female

DRUGS (3)
  1. FUROSEMIDE [Suspect]
     Active Substance: FUROSEMIDE
     Indication: Swelling
  2. NIFEDIPINE [Concomitant]
     Active Substance: NIFEDIPINE
  3. H.P. ACTHAR [Concomitant]
     Active Substance: CORTICOTROPIN

REACTIONS (2)
  - Dizziness [Unknown]
  - Atrial fibrillation [Unknown]
